FAERS Safety Report 26197244 (Version 1)
Quarter: 2025Q4

REPORT INFORMATION
  Report Type: Spontaneous
  Country: US (occurrence: US)
  Receive Date: 20251224
  Receipt Date: 20251224
  Transmission Date: 20260117
  Serious: No
  Sender: MADRIGAL PHARMACEUTICALS
  Company Number: US-MADRIGAL PHARMACEUTICALS, INC-2025USREZ16020

PATIENT

DRUGS (31)
  1. REZDIFFRA [Suspect]
     Active Substance: RESMETIROM
     Indication: Metabolic dysfunction-associated steatohepatitis
     Dosage: 80 MILLIGRAM, QD
     Route: 048
     Dates: start: 202511, end: 20251209
  2. ALLEGRA [Concomitant]
     Active Substance: FEXOFENADINE HYDROCHLORIDE
     Dosage: 180 MILLIGRAM, QD
  3. ASPIRIN [Concomitant]
     Active Substance: ASPIRIN
     Dosage: 81 MILLIGRAM, QD
  4. Pre + probiotic [Concomitant]
     Dosage: UNK, QD
  5. AMLODIPINE [Concomitant]
     Active Substance: AMLODIPINE BESYLATE
     Dosage: 5 MILLIGRAM, QD
  6. ATORVASTATIN [Concomitant]
     Active Substance: ATORVASTATIN
     Dosage: 20 MILLIGRAM, QD
  7. LISINOPRIL [Concomitant]
     Active Substance: LISINOPRIL
     Dosage: 20 MILLIGRAM, QD
  8. JARDIANCE [Concomitant]
     Active Substance: EMPAGLIFLOZIN
     Dosage: 10 MILLIGRAM, QD
  9. PROPRANOLOL [Concomitant]
     Active Substance: PROPRANOLOL HYDROCHLORIDE
     Dosage: 160 MILLIGRAM, QD, ER
  10. HYDROCHLOROTHIAZIDE [Concomitant]
     Active Substance: HYDROCHLOROTHIAZIDE
     Dosage: 25 MILLIGRAM, QD
  11. PANTOPRAZOLE [Concomitant]
     Active Substance: PANTOPRAZOLE
     Dosage: 20 MILLIGRAM, QD
  12. ANASTROZOLE [Concomitant]
     Active Substance: ANASTROZOLE
     Dosage: 1 MILLIGRAM, QD
  13. FISH OIL [Concomitant]
     Active Substance: FISH OIL
  14. FLAXSEED [Concomitant]
     Active Substance: FLAX SEED
  15. APPLE CIDER VINEGAR [Concomitant]
     Active Substance: APPLE CIDER VINEGAR
  16. MELATONIN [Concomitant]
     Active Substance: MELATONIN
     Dosage: 5 MILLIGRAM
  17. Glucosamine + chondroitin [Concomitant]
  18. HERBALS\TURMERIC [Concomitant]
     Active Substance: HERBALS\TURMERIC
  19. GARLIC [Concomitant]
     Active Substance: GARLIC
  20. PRASTERONE [Concomitant]
     Active Substance: PRASTERONE
  21. LUTEIN [Concomitant]
     Active Substance: LUTEIN
  22. VITAMIN C [Concomitant]
     Active Substance: ASCORBIC ACID
  23. CRANBERRY [Concomitant]
     Active Substance: CRANBERRY
  24. CINNAMON [Concomitant]
     Active Substance: CINNAMON
  25. COENZYME Q10 [Concomitant]
     Active Substance: DIETARY SUPPLEMENT\UBIDECARENONE
  26. VITAMIN D;VITAMIN E [Concomitant]
  27. GINKGO [Concomitant]
     Active Substance: GINKGO
  28. BIOTIN [Concomitant]
     Active Substance: BIOTIN
  29. VITAMIN B [Concomitant]
     Active Substance: VITAMIN B
  30. ALAWAY [Concomitant]
     Active Substance: KETOTIFEN FUMARATE
     Indication: Hypersensitivity
  31. SALINE [Concomitant]
     Active Substance: SODIUM CHLORIDE

REACTIONS (11)
  - Eating disorder [Recovered/Resolved]
  - Back pain [Recovering/Resolving]
  - Insomnia [Unknown]
  - Musculoskeletal chest pain [Unknown]
  - Eructation [Unknown]
  - Weight decreased [Unknown]
  - Flatulence [Unknown]
  - Vomiting [Recovering/Resolving]
  - Nausea [Recovering/Resolving]
  - Diarrhoea [Recovering/Resolving]
  - Abdominal pain [Unknown]

NARRATIVE: CASE EVENT DATE: 20251201
